FAERS Safety Report 8712932 (Version 2)
Quarter: 2012Q4

REPORT INFORMATION
  Report Type: 
  Country: US (occurrence: US)
  Receive Date: 20120808
  Receipt Date: 20120906
  Transmission Date: 20130627
  Serious: Yes (Death, Hospitalization, Other)
  Sender: FDA-Public Use
  Company Number: US-TEVA-352082USA

PATIENT
  Age: 81 None
  Sex: Male

DRUGS (13)
  1. SIMVASTATIN [Suspect]
     Indication: BLOOD CHOLESTEROL INCREASED
     Dosage: 10 Milligram Daily;
     Dates: end: 201204
  2. ROFLUMILAST [Suspect]
     Indication: CHRONIC OBSTRUCTIVE PULMONARY DISEASE
     Dosage: 500 Microgram Daily;
     Dates: start: 20111128, end: 20120430
  3. LEVOFLOXACIN [Suspect]
     Indication: BRONCHITIS
     Dates: start: 201203, end: 201203
  4. ALLOPURINOL [Concomitant]
     Indication: NEPHROLITHIASIS
     Dosage: 300 Milligram Daily;
  5. MOMETASONE FUROATE [Concomitant]
     Dosage: 220 Microgram Daily;
  6. TIOTROPIUM BROMIDE [Concomitant]
  7. SALBUTAMOL [Concomitant]
  8. FORMOTEROL [Concomitant]
  9. ASCORBIC ACID [Concomitant]
  10. ERGOCALCIFEROL [Concomitant]
  11. TOCOPHEROL [Concomitant]
  12. ACETYLSALICYLIC ACID [Concomitant]
  13. CENTRUM [Concomitant]

REACTIONS (20)
  - Sepsis [Fatal]
  - Pneumonia [Unknown]
  - Atrial fibrillation [Unknown]
  - Fall [Unknown]
  - Compression fracture [Unknown]
  - Eructation [Unknown]
  - Tremor [Unknown]
  - Dry mouth [Unknown]
  - Decreased appetite [Recovered/Resolved]
  - Ageusia [Recovered/Resolved]
  - Dysgeusia [Unknown]
  - Nausea [Recovered/Resolved]
  - Oedema peripheral [Unknown]
  - Asthenia [Unknown]
  - Muscular weakness [Unknown]
  - Bronchitis [Unknown]
  - Swelling face [Unknown]
  - Gastrooesophageal reflux disease [Unknown]
  - Weight decreased [Unknown]
  - Frequent bowel movements [Unknown]
